FAERS Safety Report 10175010 (Version 1)
Quarter: 2014Q2

REPORT INFORMATION
  Report Type: Spontaneous
  Country: GB (occurrence: GB)
  Receive Date: 20140515
  Receipt Date: 20140515
  Transmission Date: 20141212
  Serious: Yes (Other)
  Sender: FDA-Public Use
  Company Number: PHFR2014GB003391

PATIENT
  Age: 39 Year
  Sex: Male
  Weight: 80 kg

DRUGS (2)
  1. CLOZAPINE [Suspect]
     Indication: SCHIZOPHRENIA, PARANOID TYPE
     Dosage: 250 MG, QD AT NIGHT.
     Route: 048
     Dates: start: 20060509, end: 20140423
  2. TRIHEXYPHENIDYL [Suspect]
     Indication: SCHIZOPHRENIA, PARANOID TYPE
     Dosage: 5 MG, QD AT NIGHT.
     Route: 048
     Dates: start: 20140325, end: 20140417

REACTIONS (3)
  - Electrocardiogram QT prolonged [Recovered/Resolved]
  - Condition aggravated [Recovered/Resolved]
  - Drug interaction [Unknown]
